FAERS Safety Report 5793018-8 (Version None)
Quarter: 2008Q2

REPORT INFORMATION
  Report Type: 
  Country: None (occurrence: None)
  Receive Date: 20080627
  Receipt Date: 20080624
  Transmission Date: 20081010
  Serious: Yes (Life-Threatening, Hospitalization)
  Sender: FDA-Public Use
  Company Number: FR-BRISTOL-MYERS SQUIBB COMPANY-14239842

PATIENT
  Age: 81 Year
  Sex: Female

DRUGS (5)
  1. COAPROVEL [Suspect]
     Indication: HYPERTENSION
     Dates: end: 20080414
  2. LOGIMAX [Suspect]
     Indication: HYPERTENSION
     Dates: end: 20080414
  3. HALDOL [Suspect]
     Indication: PSYCHOTIC DISORDER
     Dates: end: 20080414
  4. TERCIAN [Suspect]
     Indication: PSYCHOTIC DISORDER
     Dates: end: 20080414
  5. LIPANOR [Suspect]
     Indication: DYSLIPIDAEMIA
     Dates: end: 20080414

REACTIONS (6)
  - ELECTROCARDIOGRAM QT PROLONGED [None]
  - HYPOKALAEMIA [None]
  - HYPOTHERMIA [None]
  - MALAISE [None]
  - RENAL FAILURE ACUTE [None]
  - RHABDOMYOLYSIS [None]
